FAERS Safety Report 12301979 (Version 2)
Quarter: 2018Q1

REPORT INFORMATION
  Report Type: Spontaneous
  Country: CA (occurrence: CA)
  Receive Date: 20160425
  Receipt Date: 20180222
  Transmission Date: 20180508
  Serious: Yes (Hospitalization, Other)
  Sender: FDA-Public Use
  Company Number: CA-PFIZER INC-2014315082

PATIENT
  Age: 54 Year
  Sex: Female

DRUGS (12)
  1. ARAVA [Suspect]
     Active Substance: LEFLUNOMIDE
     Indication: RHEUMATOID ARTHRITIS
     Dosage: UNK
     Dates: end: 201003
  2. DILAUDID [Concomitant]
     Active Substance: HYDROMORPHONE HYDROCHLORIDE
     Indication: RHEUMATOID ARTHRITIS
     Dosage: 4 MG, 3X/DAY AS NEEDED
     Dates: start: 2009
  3. ENBREL [Suspect]
     Active Substance: ETANERCEPT
     Indication: PAIN
  4. ACTEMRA [Suspect]
     Active Substance: TOCILIZUMAB
     Indication: RHEUMATOID ARTHRITIS
     Dosage: UNK
     Dates: start: 2013
  5. FUROSEMIDE. [Concomitant]
     Active Substance: FUROSEMIDE
  6. LYRICA [Concomitant]
     Active Substance: PREGABALIN
     Dosage: UNK
  7. PREDNISONE. [Suspect]
     Active Substance: PREDNISONE
     Indication: PAIN
     Dosage: 14 MG, QD
  8. METHOTREXATE SODIUM. [Suspect]
     Active Substance: METHOTREXATE SODIUM
     Indication: RHEUMATOID ARTHRITIS
     Dosage: UNK
     Dates: end: 201003
  9. ENBREL [Suspect]
     Active Substance: ETANERCEPT
     Indication: RHEUMATOID ARTHRITIS
     Dosage: UNK
     Route: 058
     Dates: start: 200904, end: 200909
  10. CELEBREX [Suspect]
     Active Substance: CELECOXIB
     Dosage: 200 MG, BID
     Route: 065
  11. PLAQUENIL /00072602/ [Suspect]
     Active Substance: HYDROXYCHLOROQUINE DIPHOSPHATE
     Indication: PAIN
     Dosage: UNK
     Route: 065
  12. HYDROMORPH CONTIN [Concomitant]
     Active Substance: HYDROMORPHONE
     Dosage: UNK

REACTIONS (30)
  - Memory impairment [Recovered/Resolved]
  - Rheumatoid arthritis [Recovered/Resolved]
  - Scar [Recovered/Resolved]
  - Immunodeficiency [Recovered/Resolved]
  - Sepsis [Recovered/Resolved]
  - Seizure [Recovered/Resolved]
  - Deformity [Recovered/Resolved]
  - Depressed mood [Recovered/Resolved]
  - Encephalitis brain stem [Recovered/Resolved]
  - Loss of personal independence in daily activities [Recovered/Resolved]
  - Rib fracture [Recovered/Resolved]
  - Peripheral swelling [Recovered/Resolved]
  - Spinal deformity [Recovered/Resolved]
  - Immune system disorder [Recovered/Resolved]
  - Condition aggravated [Unknown]
  - Dermatitis [Recovered/Resolved]
  - Psychiatric symptom [Recovered/Resolved]
  - Insomnia [Recovered/Resolved]
  - Dermatitis [Recovered/Resolved]
  - Encephalitis [Recovered/Resolved]
  - Cystitis [Recovered/Resolved]
  - Joint destruction [Recovered/Resolved]
  - Cardiovascular disorder [Recovered/Resolved]
  - Drug ineffective [Recovered/Resolved]
  - Vomiting [Recovered/Resolved]
  - Fibromyalgia [Recovered/Resolved]
  - Amnesia [Recovered/Resolved]
  - Immobile [Recovered/Resolved]
  - Fall [Recovered/Resolved]
  - Pain [Recovered/Resolved]

NARRATIVE: CASE EVENT DATE: 200909
